FAERS Safety Report 5838916-1 (Version None)
Quarter: 2008Q3

REPORT INFORMATION
  Report Type: 
  Country: None (occurrence: None)
  Receive Date: 20080808
  Receipt Date: 20080731
  Transmission Date: 20090109
  Serious: Yes (Hospitalization, Disabling, Other)
  Sender: FDA-Public Use
  Company Number: PHHY2008JP09929

PATIENT
  Sex: Female
  Weight: 52 kg

DRUGS (10)
  1. CAFERGOT [Suspect]
     Indication: MIGRAINE
     Dosage: 2 DF
     Route: 048
     Dates: start: 19920101, end: 20070529
  2. BETAHISTINE MESILATE [Concomitant]
     Dosage: 12 MG
     Route: 048
     Dates: start: 19920101, end: 20070529
  3. DIAZEPAM [Concomitant]
     Dosage: UNK
     Route: 048
     Dates: start: 19920101, end: 20070529
  4. NOVAMIN [Concomitant]
     Dosage: 5 MG
     Route: 048
     Dates: start: 19920101, end: 20070529
  5. MEQUITAZINE [Concomitant]
     Dosage: 6 MG
     Dates: start: 19920101, end: 20070529
  6. TRYPTANOL                               /AUS/ [Concomitant]
     Dosage: 10 MG
     Route: 048
     Dates: start: 19920101, end: 20070529
  7. NEOMALLERMIN TR [Concomitant]
     Dosage: 6MG
     Dates: start: 19920101, end: 20070529
  8. EPINASTINE HYDROCHLORIDE [Concomitant]
     Dosage: 20 MG
     Dates: start: 19920101, end: 20070529
  9. KIPRES [Concomitant]
     Dosage: UNK
     Route: 048
     Dates: start: 20070201, end: 20070529
  10. SALMETEROL XINAFOATE [Concomitant]
     Dosage: 200 MICRO GRAM
     Dates: start: 20070201, end: 20070527

REACTIONS (18)
  - AORTIC VALVE INCOMPETENCE [None]
  - ASTHMA [None]
  - BLOOD POTASSIUM INCREASED [None]
  - BRAIN NATRIURETIC PEPTIDE INCREASED [None]
  - CARDIAC FAILURE [None]
  - CATHETERISATION CARDIAC [None]
  - DYSPNOEA [None]
  - DYSPNOEA EXERTIONAL [None]
  - ECHOCARDIOGRAM ABNORMAL [None]
  - EJECTION FRACTION DECREASED [None]
  - LEFT VENTRICULAR END-DIASTOLIC PRESSURE DECREASED [None]
  - MITRAL VALVE INCOMPETENCE [None]
  - MYOCARDITIS [None]
  - NOCTURNAL DYSPNOEA [None]
  - RIGHT VENTRICULAR SYSTOLIC PRESSURE DECREASED [None]
  - VENTRICULAR DYSKINESIA [None]
  - VENTRICULAR INTERNAL DIAMETER ABNORMAL [None]
  - VENTRICULAR TACHYCARDIA [None]
